FAERS Safety Report 19702284 (Version 2)
Quarter: 2021Q4

REPORT INFORMATION
  Report Type: Spontaneous
  Country: US (occurrence: US)
  Receive Date: 20210814
  Receipt Date: 20211018
  Transmission Date: 20220303
  Serious: No
  Sender: FDA-Public Use
  Company Number: US-JNJFOC-20210811251

PATIENT
  Age: 81 Year
  Sex: Female

DRUGS (4)
  1. XARELTO [Suspect]
     Active Substance: RIVAROXABAN
     Indication: Product used for unknown indication
     Dosage: FOR 21 DAYS
     Route: 048
     Dates: start: 20210721
  2. XARELTO [Suspect]
     Active Substance: RIVAROXABAN
     Dosage: 9 TABLETS TAKEN
     Route: 048
     Dates: end: 20210810
  3. CLONIDINE [Concomitant]
     Active Substance: CLONIDINE
  4. TRIAMTERENE [Concomitant]
     Active Substance: TRIAMTERENE
     Dosage: 75-50MG
     Route: 048

REACTIONS (3)
  - Asthenia [Recovered/Resolved]
  - Decreased appetite [Recovered/Resolved]
  - Weight decreased [Recovered/Resolved]

NARRATIVE: CASE EVENT DATE: 20210721
